FAERS Safety Report 17715853 (Version 1)
Quarter: 2020Q2

REPORT INFORMATION
  Report Type: Report from Study
  Country: CN (occurrence: CN)
  Receive Date: 20200428
  Receipt Date: 20200428
  Transmission Date: 20200714
  Serious: Yes (Death)
  Sender: FDA-Public Use
  Company Number: CN-ROCHE-1993434

PATIENT
  Age: 63 Year
  Sex: Male
  Weight: 52 kg

DRUGS (1)
  1. AVASTIN [Suspect]
     Active Substance: BEVACIZUMAB
     Indication: COLON CANCER
     Route: 041
     Dates: start: 20170406

REACTIONS (6)
  - Skin laceration [Unknown]
  - Vomiting [Fatal]
  - Intestinal haemorrhage [Fatal]
  - Gait disturbance [Unknown]
  - Immunodeficiency [Unknown]
  - Melaena [Fatal]
